FAERS Safety Report 8196707-3 (Version None)
Quarter: 2012Q1

REPORT INFORMATION
  Report Type: 
  Country: None (occurrence: None)
  Receive Date: 20120307
  Receipt Date: 20120222
  Transmission Date: 20120608
  Serious: Yes (Hospitalization, Other)
  Sender: FDA-Public Use
  Company Number: CIP11002243

PATIENT
  Age: 58 Year
  Sex: Female

DRUGS (61)
  1. PREVIDENT (SODIUM FLUORIDE) [Concomitant]
  2. MICARDIS [Concomitant]
  3. SYNTHROID [Concomitant]
  4. TOPAMAX [Concomitant]
  5. BUTALBITAL/APAP (BUTALBITAL, PARACETAMOL) [Concomitant]
  6. ALLEGRA-D 12 HOUR [Concomitant]
  7. PRECOSE [Concomitant]
  8. ENABLEX /01760401/ (DARIFENACIN) [Concomitant]
  9. CARAFATE [Concomitant]
  10. NORVASC [Concomitant]
  11. DOXAZOSIN MESYLATE [Concomitant]
  12. CLARINEX /0139850 (DESLORATADINE) [Concomitant]
  13. CARISOPRODOL (CARISOPRODOL) [Concomitant]
  14. NYSTATIN W/TRIAMCINOLONE /00945901/ (NYSTATIN, TRIAMCINOLONE ACETONIDE [Concomitant]
  15. CLONAZEPAM [Concomitant]
  16. LUNESTA [Concomitant]
  17. NITROFURANTOIN (NITROFURANTION) [Concomitant]
  18. HYDROXYZINE PAMOATE [Concomitant]
  19. QUININE SULFATE [Concomitant]
  20. SEROQUEL [Concomitant]
  21. ANTIPYRINE W/BENZOCAINE (BENZOCAINE, PHENAZONE) [Concomitant]
  22. ORPHENADRINE CITRATE [Concomitant]
  23. ZYRTEC [Concomitant]
  24. NALTREXONE HYDROCHLORIDE [Concomitant]
  25. VAGIFEM [Concomitant]
  26. AXERT [Concomitant]
  27. CYCLOBENZAPRINE [Concomitant]
  28. MIRTAZAPINE [Concomitant]
  29. ZOFRAN /00955301/ (ONDANSETRON) [Concomitant]
  30. CYMBALTA [Concomitant]
  31. MUPIROCIN [Concomitant]
  32. VITAMIN C /00008001/ (ASCORBIC ACID) [Concomitant]
  33. VITAMIN B (VITAMIN B COMPLEX) [Concomitant]
  34. ACTONEL [Suspect]
     Dosage: 35 MG ONCE WEEKLY, ORAL
     Route: 048
     Dates: start: 20041206, end: 20060202
  35. APAP W/CODEINE (CODEINE, PARACETAMOL) [Concomitant]
  36. TRAMADOL/APAP (PARACETAMOL, TAMADOL HYDROCHLORIDE) [Concomitant]
  37. MECLIZINE /00072801/ (MECLOZINE) [Concomitant]
  38. CHLORPROMAZINE [Concomitant]
  39. FEXOFENADINE HCL [Concomitant]
  40. CENTRIUM SILVER /01292501/ (ASCORBIC ACID , CALCIUM, MINERALS NOS, RET [Concomitant]
  41. CHLORAL HYDRATE (CHLORAL HYDRATE) [Concomitant]
  42. BENTROPINE (BENZATROPINE MESILATE) [Concomitant]
  43. GABITRIL (TIAGABINE HDYROCHLORIDE) [Concomitant]
  44. CIPROFLOXACIN [Concomitant]
  45. ACIPHEX [Concomitant]
  46. PAROXETINE HCL [Concomitant]
  47. HALOPERIDOL LACTATE [Concomitant]
  48. ZOMIG [Concomitant]
  49. AMOXICILLIN [Concomitant]
  50. PREVALITE [Concomitant]
  51. TRIAMCINOLONE [Concomitant]
  52. CIMETIDINE [Concomitant]
  53. FERGON [Concomitant]
  54. BONIVA [Suspect]
     Dosage: 150 MG ONCE MONTHLY, ORAL
     Route: 048
     Dates: start: 20060306, end: 20090909
  55. SONATA /01454001/ (ZALEPLON) [Concomitant]
  56. PYRIDIU (PHENAZOPYRIDINE HYDROCHLORIDE) [Concomitant]
  57. FOLPLEX (CYANOCOBALAMIN, FOLIC ACID, PYRIDOXINE HYDROCHLORIDE) [Concomitant]
  58. DOXEPIN HCL [Concomitant]
  59. DIAZEPAM [Concomitant]
  60. TERAZOSIN HCL [Concomitant]
  61. PREMARIN [Concomitant]

REACTIONS (23)
  - MUSCLE RUPTURE [None]
  - OSTEOPOROTIC FRACTURE [None]
  - BONE DISORDER [None]
  - DYSARTHRIA [None]
  - FRACTURE DISPLACEMENT [None]
  - ARTHRALGIA [None]
  - LOW TURNOVER OSTEOPATHY [None]
  - STRESS FRACTURE [None]
  - OSTEOLYSIS [None]
  - BONE GRAFT [None]
  - HYPONATRAEMIA [None]
  - FRACTURE NONUNION [None]
  - FEMUR FRACTURE [None]
  - LOWER EXTREMITY MASS [None]
  - PATHOLOGICAL FRACTURE [None]
  - EXOSTOSIS [None]
  - MUSCLE HAEMORRHAGE [None]
  - STAPHYLOCOCCAL INFECTION [None]
  - FALL [None]
  - MOBILITY DECREASED [None]
  - GROIN PAIN [None]
  - PAIN [None]
  - HIP DEFORMITY [None]
